FAERS Safety Report 9521616 (Version 2)
Quarter: 2014Q1

REPORT INFORMATION
  Report Type: Report from Study
  Country: FR (occurrence: FR)
  Receive Date: 20130913
  Receipt Date: 20140219
  Transmission Date: 20141002
  Serious: Yes (Other)
  Sender: FDA-Public Use
  Company Number: FR-MILLENNIUM PHARMACEUTICALS, INC.-2013JNJ000219

PATIENT
  Sex: 0

DRUGS (9)
  1. VELCADE [Suspect]
     Indication: MANTLE CELL LYMPHOMA
     Dosage: 2.05 MG, UNK
     Route: 058
     Dates: start: 20120710, end: 20121206
  2. MABTHERA [Suspect]
     Indication: MANTLE CELL LYMPHOMA
     Dosage: 590 MG, UNK
     Route: 042
     Dates: start: 20120710, end: 20121126
  3. LEVACT [Suspect]
     Indication: MANTLE CELL LYMPHOMA
     Dosage: 142.5 MG, UNK
     Route: 042
     Dates: start: 20120710, end: 20121127
  4. DEXAMETHASONE [Suspect]
     Indication: MANTLE CELL LYMPHOMA
     Dosage: 40 MG, UNK
     Route: 048
     Dates: start: 20120711, end: 20121127
  5. CARDEGIC [Concomitant]
     Indication: ARTERIAL DISORDER
     Dosage: 75 MG, UNK
     Route: 048
  6. BRICANYL                           /00199202/ [Concomitant]
     Indication: CHRONIC OBSTRUCTIVE PULMONARY DISEASE
     Dosage: UNK
     Route: 050
  7. ATROVENT [Concomitant]
     Indication: CHRONIC OBSTRUCTIVE PULMONARY DISEASE
     Dosage: UNK
     Route: 050
  8. PRAVASTATINE                       /00880401/ [Concomitant]
     Indication: ARTERIAL DISORDER
     Dosage: 20 MG, UNK
     Route: 048
  9. ZELITREX                           /01269701/ [Concomitant]
     Indication: PROPHYLAXIS
     Dosage: 1000 MG, UNK
     Route: 048
     Dates: start: 20120710

REACTIONS (1)
  - Transitional cell carcinoma [Not Recovered/Not Resolved]
